FAERS Safety Report 9684042 (Version 1)
Quarter: 2013Q4

REPORT INFORMATION
  Report Type: Spontaneous
  Country: US (occurrence: US)
  Receive Date: 20131112
  Receipt Date: 20131112
  Transmission Date: 20140711
  Serious: No
  Sender: FDA-Public Use
  Company Number: US-ENDO PHARMACEUTICALS INC.-HCTZ20120009

PATIENT
  Age: 71 Year
  Sex: Female

DRUGS (2)
  1. HYDROCHLOROTHIAZIDE TABLETS 25MG [Suspect]
     Indication: HYPERTENSION
     Route: 048
     Dates: end: 20120608
  2. HYDROCHLOROTHIAZIDE TABLETS 25MG [Suspect]
     Route: 048
     Dates: start: 20120615

REACTIONS (5)
  - Balance disorder [Unknown]
  - Malaise [Unknown]
  - Somnolence [Unknown]
  - Agitation [Unknown]
  - Headache [Unknown]
